FAERS Safety Report 18338976 (Version 1)
Quarter: 2020Q4

REPORT INFORMATION
  Report Type: Spontaneous
  Country: PT (occurrence: PT)
  Receive Date: 20201002
  Receipt Date: 20201002
  Transmission Date: 20210113
  Serious: Yes (Other)
  Sender: FDA-Public Use
  Company Number: PT-PFIZER INC-2020374418

PATIENT
  Age: 33 Year
  Sex: Male

DRUGS (2)
  1. PIPERACILLIN AND TAZOBACTAM [Suspect]
     Active Substance: PIPERACILLIN SODIUM\TAZOBACTAM SODIUM
     Indication: ANTIBIOTIC THERAPY
     Dosage: UNK
  2. CLINDAMYCIN HCL [Suspect]
     Active Substance: CLINDAMYCIN HYDROCHLORIDE
     Indication: ANTIBIOTIC THERAPY
     Dosage: UNK

REACTIONS (1)
  - Toxic skin eruption [Unknown]
